FAERS Safety Report 9700122 (Version 1)
Quarter: 2013Q4

REPORT INFORMATION
  Report Type: Spontaneous
  Country: FR (occurrence: FR)
  Receive Date: 20131121
  Receipt Date: 20131121
  Transmission Date: 20140711
  Serious: Yes (Hospitalization)
  Sender: FDA-Public Use
  Company Number: FR-BRISTOL-MYERS SQUIBB COMPANY-19829910

PATIENT
  Age: 59 Year
  Sex: Male

DRUGS (5)
  1. GLUCOPHAGE TABS 1000 MG [Suspect]
     Indication: TYPE 2 DIABETES MELLITUS
     Route: 048
     Dates: end: 20130523
  2. COVERSYL [Interacting]
     Indication: HYPERTENSION
     Route: 048
     Dates: end: 20130523
  3. SITAGLIPTIN PHOSPHATE + METFORMIN HCL [Interacting]
     Indication: TYPE 2 DIABETES MELLITUS
     Dosage: 1 DF: 50/1000 MG DAILY
     Route: 048
     Dates: end: 20130523
  4. PROFENID [Interacting]
     Route: 048
     Dates: start: 201305, end: 20130523
  5. DIAMICRON [Concomitant]
     Indication: TYPE 2 DIABETES MELLITUS
     Route: 048
     Dates: end: 20130523

REACTIONS (5)
  - Metabolic acidosis [Recovered/Resolved]
  - Hyperkalaemia [Recovered/Resolved]
  - Renal failure acute [Recovered/Resolved]
  - Blood lactic acid increased [Recovered/Resolved]
  - Drug interaction [Unknown]
